FAERS Safety Report 19376603 (Version 1)
Quarter: 2021Q2

REPORT INFORMATION
  Report Type: Spontaneous
  Country: US (occurrence: US)
  Receive Date: 20210604
  Receipt Date: 20210604
  Transmission Date: 20210717
  Serious: No
  Sender: FDA-Public Use
  Company Number: US-BIOGEN-2021BI01017920

PATIENT
  Age: 75 Year
  Sex: Male

DRUGS (8)
  1. SOLU?MEDROL [Concomitant]
     Active Substance: METHYLPREDNISOLONE SODIUM SUCCINATE
     Dosage: INJECTION SOLUTION RECONSTITUTED IV PER DAY FOR 3 DAYS, INFUSE OVER 1.5?2 HOURS AS TOLERATED
     Route: 042
  2. IMIPRAMINE [Concomitant]
     Active Substance: IMIPRAMINE
     Dosage: 2 QHS
     Route: 048
  3. TYSABRI [Suspect]
     Active Substance: NATALIZUMAB
     Indication: MULTIPLE SCLEROSIS
     Route: 042
     Dates: start: 20061026
  4. PFIZER?BIONTECH COVID?19 VACCINE [Suspect]
     Active Substance: TOZINAMERAN
     Indication: COVID-19 PROPHYLAXIS
     Route: 065
  5. AMBIEN CR [Concomitant]
     Active Substance: ZOLPIDEM TARTRATE
     Dosage: EXTENDED RELEASE TABLET, QHS PRN
     Route: 048
  6. VITAMIN D3 [Concomitant]
     Active Substance: CHOLECALCIFEROL
     Dosage: 2000 UNITS
     Route: 048
  7. TYSABRI [Suspect]
     Active Substance: NATALIZUMAB
     Dosage: EVERY 36 TO 42 WEEKS
     Route: 042
     Dates: start: 20200304
  8. GABAPENTIN. [Concomitant]
     Active Substance: GABAPENTIN
     Dosage: 2 QHS
     Route: 048

REACTIONS (2)
  - Prescribed underdose [Not Recovered/Not Resolved]
  - Vaccination complication [Unknown]

NARRATIVE: CASE EVENT DATE: 20200304
